FAERS Safety Report 19944051 (Version 2)
Quarter: 2021Q4

REPORT INFORMATION
  Report Type: Spontaneous
  Country: TR (occurrence: TR)
  Receive Date: 20211011
  Receipt Date: 20211111
  Transmission Date: 20220303
  Serious: Yes (Life-Threatening, Hospitalization)
  Sender: FDA-Public Use
  Company Number: TR-BAUSCH-BL-2021-033402

PATIENT
  Age: 6 Month
  Sex: Male

DRUGS (2)
  1. TROPICAMIDE [Suspect]
     Active Substance: TROPICAMIDE
     Indication: Retinoscopy
     Dosage: INSTILLED IN BOTH EYES
     Route: 047
  2. TROPICAMIDE [Suspect]
     Active Substance: TROPICAMIDE
     Indication: Fundoscopy

REACTIONS (2)
  - Anaphylactic shock [Recovered/Resolved]
  - Wrong technique in product usage process [Unknown]
